FAERS Safety Report 6262992-8 (Version None)
Quarter: 2009Q3

REPORT INFORMATION
  Report Type: 
  Country: None (occurrence: None)
  Receive Date: 20090710
  Receipt Date: 20090701
  Transmission Date: 20100115
  Serious: Yes (Other)
  Sender: FDA-Public Use
  Company Number: US-JNJCH-2009018239

PATIENT
  Age: 55 Year
  Weight: 59 kg

DRUGS (1)
  1. BENADRYL [Suspect]
     Indication: SLEEP DISORDER
     Dosage: TEXT:UNSPECIFIED
     Route: 048

REACTIONS (2)
  - DEPENDENCE [None]
  - THERAPEUTIC RESPONSE UNEXPECTED [None]
